FAERS Safety Report 13896829 (Version 1)
Quarter: 2017Q3

REPORT INFORMATION
  Report Type: Spontaneous
  Country: US (occurrence: None)
  Receive Date: 20170817
  Receipt Date: 20170817
  Transmission Date: 20171127
  Serious: Yes (Hospitalization)
  Sender: FDA-Public Use
  Company Number: None

PATIENT
  Age: 61 Year
  Sex: Male

DRUGS (2)
  1. LEVOTHYROXINE. [Suspect]
     Active Substance: LEVOTHYROXINE
     Indication: AUTOIMMUNE THYROIDITIS
     Route: 048
     Dates: start: 20080124
  2. BUPROPION. [Suspect]
     Active Substance: BUPROPION
     Indication: DEPRESSION
     Route: 048
     Dates: start: 20160519

REACTIONS (3)
  - Atrial flutter [None]
  - Dizziness [None]
  - Hypotension [None]

NARRATIVE: CASE EVENT DATE: 20170803
